FAERS Safety Report 16364781 (Version 1)
Quarter: 2019Q2

REPORT INFORMATION
  Report Type: Spontaneous
  Country: JP (occurrence: JP)
  Receive Date: 20190529
  Receipt Date: 20190529
  Transmission Date: 20190711
  Serious: Yes (Other)
  Sender: FDA-Public Use
  Company Number: JP-SUN PHARMACEUTICAL INDUSTRIES LTD-2019R1-208877

PATIENT
  Age: 40 Year
  Sex: Female

DRUGS (4)
  1. FAMOTIDINE. [Suspect]
     Active Substance: FAMOTIDINE
     Indication: PRODUCT USED FOR UNKNOWN INDICATION
     Dosage: UNK
     Route: 042
  2. APRESOLINE HYDROCHLORIDE [Suspect]
     Active Substance: HYDRALAZINE HYDROCHLORIDE
     Dosage: 90 MILLIGRAM, DAILY
     Route: 048
  3. APRESOLINE HYDROCHLORIDE [Suspect]
     Active Substance: HYDRALAZINE HYDROCHLORIDE
     Indication: HYPERTENSION
     Dosage: 60 MILLIGRAM, DAILY
     Route: 048
  4. ARGATROBAN HYDRATE [Suspect]
     Active Substance: ARGATROBAN
     Indication: VENOUS THROMBOSIS LIMB
     Dosage: 0.8 ?, DAILY
     Route: 042

REACTIONS (7)
  - Venous thrombosis limb [Recovering/Resolving]
  - Coagulopathy [Unknown]
  - Anaphylactic shock [Recovering/Resolving]
  - Polyhydramnios [Unknown]
  - Premature delivery [Unknown]
  - Exposure during pregnancy [Unknown]
  - Live birth [Unknown]
